FAERS Safety Report 8042440-8 (Version None)
Quarter: 2012Q1

REPORT INFORMATION
  Report Type: 
  Country: None (occurrence: None)
  Receive Date: 20120112
  Receipt Date: 20111222
  Transmission Date: 20120608
  Serious: Yes (Life-Threatening)
  Sender: FDA-Public Use
  Company Number: US-JNJFOC-20120102716

PATIENT
  Sex: Female
  Weight: 88.45 kg

DRUGS (8)
  1. VYTORIN [Concomitant]
     Indication: HYPERLIPIDAEMIA
     Dosage: DOSE: 10-20 MG
     Dates: start: 20070401
  2. HYDROXYZINE [Concomitant]
  3. NUCYNTA [Suspect]
     Route: 048
  4. TRAZODONE HCL [Concomitant]
     Indication: DEPRESSION
     Route: 048
     Dates: start: 20050101
  5. CYCLOBENZAPRINE [Concomitant]
     Indication: MUSCLE SPASMS
     Route: 048
     Dates: start: 20100601
  6. NUCYNTA [Suspect]
     Indication: PAIN
     Route: 048
     Dates: start: 20100818
  7. EFFEXOR XR [Interacting]
     Indication: DEPRESSION
     Dosage: 150 MG IN MORNING, 75 MG IN EVENING
     Route: 048
     Dates: start: 20040101
  8. DIAZEPAM [Concomitant]
     Route: 048

REACTIONS (3)
  - DRUG INTERACTION [None]
  - TACHYCARDIA [None]
  - HYPERTENSION [None]
